FAERS Safety Report 4690989-8 (Version None)
Quarter: 2005Q2

REPORT INFORMATION
  Report Type: 
  Country: None (occurrence: None)
  Receive Date: 20050610
  Receipt Date: 20050531
  Transmission Date: 20051028
  Serious: Yes (Other)
  Sender: FDA-Public Use
  Company Number: 2005081154

PATIENT
  Age: 68 Year
  Sex: Female

DRUGS (3)
  1. LIPITOR [Suspect]
     Dosage: ORAL
     Route: 048
     Dates: start: 20030201, end: 20030701
  2. CEFDINIR [Suspect]
     Dosage: ORAL
     Route: 048
     Dates: start: 20030701
  3. FAMOTIDINE [Suspect]
     Dosage: ORAL
     Route: 048
     Dates: start: 20030601, end: 20030701

REACTIONS (3)
  - LIVER DISORDER [None]
  - RENAL DISORDER [None]
  - TOXIC EPIDERMAL NECROLYSIS [None]
